FAERS Safety Report 7514686-6 (Version None)
Quarter: 2011Q2

REPORT INFORMATION
  Report Type: 
  Country: None (occurrence: None)
  Receive Date: 20110526
  Receipt Date: 20110526
  Transmission Date: 20111010
  Serious: Yes (Death, Hospitalization)
  Sender: FDA-Public Use
  Company Number: None

PATIENT
  Sex: Female
  Weight: 44.4525 kg

DRUGS (1)
  1. PRADAXA [Suspect]
     Indication: COAGULOPATHY
     Dosage: 1 CAPSULE 2 TIMES DAILY
     Dates: start: 20101201, end: 20110305

REACTIONS (1)
  - UNEVALUABLE EVENT [None]
